FAERS Safety Report 8740565 (Version 4)
Quarter: 2013Q3

REPORT INFORMATION
  Report Type: Spontaneous
  Country: US (occurrence: US)
  Receive Date: 20120823
  Receipt Date: 20130813
  Transmission Date: 20140515
  Serious: Yes (Hospitalization, Other)
  Sender: FDA-Public Use
  Company Number: US-009507513-1208USA008011

PATIENT
  Sex: Female

DRUGS (9)
  1. NUVARING [Suspect]
     Indication: PROPHYLAXIS
     Dosage: UNK
     Route: 067
     Dates: start: 20100719, end: 20100811
  2. NUVARING [Suspect]
     Indication: MIGRAINE
  3. TOPAMAX [Concomitant]
     Indication: MIGRAINE
     Dosage: 200 MG, QD
     Dates: start: 2005, end: 201009
  4. ASTELIN (AZELASTINE HYDROCHLORIDE) [Concomitant]
     Indication: HYPERSENSITIVITY
     Dosage: UNK, QD
     Route: 045
  5. LEXAPRO [Concomitant]
     Indication: DEPRESSION
     Dosage: 10 MG, QD
  6. AXERT [Concomitant]
     Indication: MIGRAINE
     Dosage: UNK, PRN
     Dates: start: 200505
  7. LYRICA [Concomitant]
     Indication: FIBROMYALGIA
  8. FLONASE [Concomitant]
  9. MIGRANOL (ACETAMINOPHEN (+) ATROPINE SULFATE (+) NIACIN (+) PAPAVERINE [Concomitant]

REACTIONS (16)
  - Thrombolysis [Unknown]
  - Pulmonary embolism [Unknown]
  - Hypercholesterolaemia [Not Recovered/Not Resolved]
  - Off label use [Unknown]
  - Menstruation irregular [Unknown]
  - Musculoskeletal pain [Not Recovered/Not Resolved]
  - Pleural effusion [Unknown]
  - Hypokalaemia [Unknown]
  - Pneumonia [Recovering/Resolving]
  - Pyrexia [Unknown]
  - Pleurisy [Not Recovered/Not Resolved]
  - International normalised ratio decreased [Unknown]
  - Tongue biting [Unknown]
  - Petechiae [Unknown]
  - Tongue haemorrhage [Unknown]
  - International normalised ratio increased [Unknown]
